FAERS Safety Report 12221802 (Version 1)
Quarter: 2016Q1

REPORT INFORMATION
  Report Type: Report from Study
  Country: US (occurrence: US)
  Receive Date: 20160330
  Receipt Date: 20160330
  Transmission Date: 20160526
  Serious: Yes (Hospitalization)
  Sender: FDA-Public Use
  Company Number: US-PFIZER INC-2016177350

PATIENT
  Age: 34 Year
  Sex: Male

DRUGS (3)
  1. TRIAVIL [Suspect]
     Active Substance: AMITRIPTYLINE HYDROCHLORIDE\PERPHENAZINE
     Dosage: 8 TABLETS
  2. DOXEPIN HCL [Suspect]
     Active Substance: DOXEPIN HYDROCHLORIDE
     Dosage: 450 MG, UNK
  3. CHLORDIAZEPOXIDE [Suspect]
     Active Substance: CHLORDIAZEPOXIDE
     Dosage: 250 MG, UNK

REACTIONS (3)
  - Overdose [Unknown]
  - Coma [Unknown]
  - Pneumonia [Unknown]
